FAERS Safety Report 12796156 (Version 3)
Quarter: 2016Q4

REPORT INFORMATION
  Report Type: Spontaneous
  Country: DE (occurrence: DE)
  Receive Date: 20160929
  Receipt Date: 20161109
  Transmission Date: 20170207
  Serious: Yes (Other)
  Sender: FDA-Public Use
  Company Number: DE-009507513-1609DEU007481

PATIENT
  Age: 19 Year
  Sex: Female
  Weight: 68 kg

DRUGS (2)
  1. NUVARING [Suspect]
     Active Substance: ETHINYL ESTRADIOL\ETONOGESTREL
     Indication: CONTRACEPTION
     Dosage: 1 VAGINAL RING
     Route: 067
     Dates: start: 201511, end: 201608
  2. NUVARING [Suspect]
     Active Substance: ETHINYL ESTRADIOL\ETONOGESTREL
     Indication: PREMENSTRUAL SYNDROME

REACTIONS (5)
  - Tachycardia [Recovered/Resolved]
  - Tonsillitis [Not Recovered/Not Resolved]
  - Tachycardia [Recovered/Resolved]
  - Hypothyroidism [Not Recovered/Not Resolved]
  - Product use issue [Unknown]

NARRATIVE: CASE EVENT DATE: 201511
